FAERS Safety Report 15327883 (Version 1)
Quarter: 2018Q3

REPORT INFORMATION
  Report Type: Spontaneous
  Country: US (occurrence: US)
  Receive Date: 20180828
  Receipt Date: 20180828
  Transmission Date: 20181010
  Serious: No
  Sender: FDA-Public Use
  Company Number: US-ROCHE-2047507

PATIENT
  Sex: Male

DRUGS (3)
  1. HYDROXYUREA. [Concomitant]
     Active Substance: HYDROXYUREA
     Route: 065
  2. CLOBETASOL PROPIONATE. [Concomitant]
     Active Substance: CLOBETASOL PROPIONATE
     Route: 065
  3. PEGASYS [Suspect]
     Active Substance: PEGINTERFERON ALFA-2A
     Indication: ESSENTIAL THROMBOCYTHAEMIA
     Dosage: IN THE ABDOMEN OR THIGH?VIAL, 180 MCG
     Route: 058

REACTIONS (4)
  - Headache [Unknown]
  - Off label use [Unknown]
  - Influenza like illness [Unknown]
  - Intentional product use issue [Unknown]
